FAERS Safety Report 15357738 (Version 2)
Quarter: 2018Q3

REPORT INFORMATION
  Report Type: Spontaneous
  Country: DE (occurrence: DE)
  Receive Date: 20180906
  Receipt Date: 20180921
  Transmission Date: 20181010
  Serious: Yes (Other)
  Sender: FDA-Public Use
  Company Number: DE-B.I. PHARMACEUTICALS,INC./RIDGEFIELD-2018-BI-044470

PATIENT
  Age: 64 Year
  Sex: Female

DRUGS (2)
  1. PEMETREXED. [Concomitant]
     Active Substance: PEMETREXED
     Indication: PRODUCT USED FOR UNKNOWN INDICATION
     Route: 065
     Dates: start: 201708
  2. GILOTRIF [Suspect]
     Active Substance: AFATINIB
     Indication: NON-SMALL CELL LUNG CANCER STAGE IV
     Route: 065
     Dates: start: 201502

REACTIONS (12)
  - Paronychia [Unknown]
  - Diarrhoea [Unknown]
  - General physical health deterioration [Unknown]
  - Neoplasm progression [Unknown]
  - Cough [Unknown]
  - Metastases to bone [Unknown]
  - Dyspnoea [Unknown]
  - Malignant neoplasm progression [Unknown]
  - Spinal pain [Unknown]
  - Lung cancer metastatic [Unknown]
  - Mucosal inflammation [Unknown]
  - Bone pain [Unknown]

NARRATIVE: CASE EVENT DATE: 201612
